FAERS Safety Report 17924349 (Version 2)
Quarter: 2020Q4

REPORT INFORMATION
  Report Type: Other
  Country: US (occurrence: US)
  Receive Date: 20200622
  Receipt Date: 20201221
  Transmission Date: 20210113
  Serious: No
  Sender: FDA-Public Use
  Company Number: US-ACORDA-ACO_164421_2020

PATIENT
  Sex: Female

DRUGS (4)
  1. INBRIJA [Suspect]
     Active Substance: LEVODOPA
     Indication: PARKINSON^S DISEASE
     Dosage: 2 CAPSULES, QD (ALSO REPORTED AS 2 CAPSULES PRN, NOT TO EXCEED 5 DOSES A DAY)
     Dates: start: 202001, end: 202002
  2. INBRIJA [Suspect]
     Active Substance: LEVODOPA
     Indication: ON AND OFF PHENOMENON
  3. CARBIDOPA LEVODOPA [Concomitant]
     Active Substance: CARBIDOPA\LEVODOPA
     Indication: PRODUCT USED FOR UNKNOWN INDICATION
     Dosage: UNK UNK, TID
     Route: 065
  4. RYTARY [Concomitant]
     Active Substance: CARBIDOPA\LEVODOPA
     Indication: PRODUCT USED FOR UNKNOWN INDICATION
     Dosage: 2 CAPSULES, 4 TIMES A DAY 195 AND 145 MG
     Route: 065

REACTIONS (3)
  - Cough [Unknown]
  - Choking [Unknown]
  - Feeling abnormal [Unknown]
